FAERS Safety Report 4551342-0 (Version None)
Quarter: 2005Q1

REPORT INFORMATION
  Report Type: 
  Country: None (occurrence: None)
  Receive Date: 20050107
  Receipt Date: 20041222
  Transmission Date: 20050727
  Serious: Yes (Hospitalization)
  Sender: FDA-Public Use
  Company Number: DSA_25548_2004

PATIENT
  Age: 85 Year
  Sex: Female

DRUGS (6)
  1. DILTIAZEM HCL [Suspect]
     Indication: ATRIAL FIBRILLATION
     Dosage: 90 MG BID PO
     Route: 048
     Dates: start: 20041130
  2. DILTIAZEM HCL [Suspect]
     Indication: HYPERTENSION
     Dosage: 90 MG BID PO
     Route: 048
     Dates: start: 20041130
  3. ALDACTAZINE [Concomitant]
  4. SINTROM [Concomitant]
  5. FOSAMAX [Concomitant]
  6. DIGOXIN [Concomitant]

REACTIONS (3)
  - DIZZINESS [None]
  - FATIGUE [None]
  - HOT FLUSH [None]
